FAERS Safety Report 19854069 (Version 1)
Quarter: 2021Q3

REPORT INFORMATION
  Report Type: Spontaneous
  Country: US (occurrence: US)
  Receive Date: 20210920
  Receipt Date: 20210920
  Transmission Date: 20211014
  Serious: No
  Sender: FDA-Public Use
  Company Number: US-AMGEN-USASP2021141546

PATIENT
  Age: 71 Year
  Sex: Male

DRUGS (6)
  1. PROLIA [Suspect]
     Active Substance: DENOSUMAB
     Indication: BONE DISORDER
     Dosage: 60 MILLIGRAM, Q6MO
     Route: 065
     Dates: start: 2020
  2. ZYTIGA [Concomitant]
     Active Substance: ABIRATERONE ACETATE
  3. MODERNA COVID?19 VACCINE [Suspect]
     Active Substance: CX-024414
     Indication: PRODUCT USED FOR UNKNOWN INDICATION
     Dosage: UNK
     Route: 065
     Dates: start: 202102
  4. VITAMIN D [ERGOCALCIFEROL] [Concomitant]
     Active Substance: ERGOCALCIFEROL
  5. MODERNA COVID?19 VACCINE [Suspect]
     Active Substance: CX-024414
     Dosage: UNK
     Route: 065
     Dates: start: 202103
  6. CALCIUM [Concomitant]
     Active Substance: CALCIUM

REACTIONS (1)
  - Vaccination failure [Unknown]

NARRATIVE: CASE EVENT DATE: 202106
